FAERS Safety Report 6208548-4 (Version None)
Quarter: 2009Q2

REPORT INFORMATION
  Report Type: 
  Country: None (occurrence: None)
  Receive Date: 20090529
  Receipt Date: 20090520
  Transmission Date: 20091009
  Serious: No
  Sender: FDA-Public Use
  Company Number: JP-EISAI INC.-E3810-02842-SPO-JP

PATIENT
  Age: 48 Year
  Sex: Female

DRUGS (2)
  1. PARIET (RABEPRAZOLE) [Suspect]
     Route: 048
     Dates: start: 20061201, end: 20061201
  2. SELBEX [Suspect]
     Dosage: UNKNOWN
     Route: 048
     Dates: start: 20061201, end: 20061201

REACTIONS (1)
  - LIVER DISORDER [None]
